FAERS Safety Report 7394166-1 (Version None)
Quarter: 2011Q2

REPORT INFORMATION
  Report Type: 
  Country: None (occurrence: None)
  Receive Date: 20110405
  Receipt Date: 20101014
  Transmission Date: 20111010
  Serious: Yes (Hospitalization, Other)
  Sender: FDA-Public Use
  Company Number: US-BAYER-201023019NA

PATIENT
  Sex: Female
  Weight: 81.633 kg

DRUGS (19)
  1. YAZ [Suspect]
     Route: 048
     Dates: start: 20030101, end: 20090715
  2. PROMETHAZINE [Concomitant]
  3. CLARITIN [Concomitant]
     Dosage: UNK
     Route: 048
     Dates: start: 20070801
  4. PHENERGAN [Concomitant]
     Dosage: UNK
     Route: 048
     Dates: start: 20090101, end: 20090301
  5. YASMIN [Suspect]
     Dosage: 1 DF, QD
     Dates: start: 20030101, end: 20090701
  6. ADDERALL XR 10 [Concomitant]
  7. POTASSIUM CITRATE/CITRIC ACID [Concomitant]
     Dosage: UNK
     Route: 048
     Dates: start: 20071201
  8. ATIVAN [Concomitant]
     Indication: ANXIETY
     Dosage: 1 MG, PRN
     Route: 048
     Dates: start: 20090101, end: 20090101
  9. FLONASE [Concomitant]
     Dosage: UNK
     Route: 045
     Dates: start: 20080501, end: 20080501
  10. TIZANIDINE [Concomitant]
     Dosage: 40 MG, OM
  11. MAXALT-MLT [Concomitant]
  12. METFORMIN [Concomitant]
     Dosage: 1500 MG, QD
     Route: 048
     Dates: start: 20070101
  13. SINGULAIR [Concomitant]
     Dosage: 10 MG, HS
     Route: 048
  14. VITAMIN D [COLECALCIFEROL] [Concomitant]
     Dosage: UNK
     Route: 048
     Dates: start: 20090101
  15. KLONOPIN [Concomitant]
     Dosage: 0.5 MG, UNK
     Dates: start: 20090401, end: 20090401
  16. CYANOCOBALAMIN [Concomitant]
     Dosage: 1000 MCG/ML, UNK
     Dates: start: 20090301, end: 20090301
  17. FIORICET [Concomitant]
  18. VERAPAMIL [Concomitant]
  19. PROVENTIL-HFA [Concomitant]
     Dosage: UNK
     Route: 055
     Dates: start: 20080101, end: 20080101

REACTIONS (15)
  - DEPRESSED MOOD [None]
  - WALKING AID USER [None]
  - APHASIA [None]
  - ASTHENIA [None]
  - DYSARTHRIA [None]
  - NERVE INJURY [None]
  - DISORIENTATION [None]
  - FATIGUE [None]
  - DEPRESSION [None]
  - HEMIPARESIS [None]
  - DYSPHAGIA [None]
  - TRANSIENT ISCHAEMIC ATTACK [None]
  - CEREBROVASCULAR ACCIDENT [None]
  - VISUAL FIELD DEFECT [None]
  - PARAPLEGIA [None]
